FAERS Safety Report 13512008 (Version 2)
Quarter: 2017Q2

REPORT INFORMATION
  Report Type: Spontaneous
  Country: US (occurrence: US)
  Receive Date: 20170504
  Receipt Date: 20170614
  Transmission Date: 20170830
  Serious: No
  Sender: FDA-Public Use
  Company Number: US-ASTRAZENECA-2017SE44124

PATIENT
  Age: 21312 Day
  Sex: Female
  Weight: 52.6 kg

DRUGS (1)
  1. PULMICORT FLEXHALER [Suspect]
     Active Substance: BUDESONIDE
     Indication: ASTHMA
     Dosage: 180 MCG 1 PUFF TWICE A DAY
     Route: 055
     Dates: start: 20170414

REACTIONS (4)
  - Dry mouth [Recovered/Resolved]
  - Intentional device misuse [Not Recovered/Not Resolved]
  - Chest discomfort [Recovered/Resolved]
  - Product quality issue [Unknown]

NARRATIVE: CASE EVENT DATE: 20170414
